FAERS Safety Report 8374719-4 (Version None)
Quarter: 2012Q2

REPORT INFORMATION
  Report Type: 
  Country: None (occurrence: None)
  Receive Date: 20120521
  Receipt Date: 20120508
  Transmission Date: 20120825
  Serious: Yes (Hospitalization, Other)
  Sender: FDA-Public Use
  Company Number: US-ACTELION-A-US2012-59191

PATIENT

DRUGS (8)
  1. COUMADIN [Concomitant]
  2. PREDNISONE [Concomitant]
  3. EPOPROSTENOL SODIUM [Suspect]
     Indication: PULMONARY ARTERIAL HYPERTENSION
     Dosage: 57 NG/KG, PER MIN
     Route: 042
     Dates: start: 20111117
  4. FLOLAN [Concomitant]
  5. FUROSEMIDE [Concomitant]
  6. OXYGEN [Concomitant]
  7. TRACLEER [Suspect]
     Indication: PULMONARY ARTERIAL HYPERTENSION
     Dosage: UNK
     Route: 048
     Dates: start: 20040801
  8. SPIRONOLACTONE [Concomitant]

REACTIONS (14)
  - EYELID OEDEMA [None]
  - FUNGAL INFECTION [None]
  - DRUG INTOLERANCE [None]
  - POLLAKIURIA [None]
  - WEIGHT DECREASED [None]
  - DYSGEUSIA [None]
  - CATHETER SITE PRURITUS [None]
  - CATHETER SITE ERYTHEMA [None]
  - VOMITING [None]
  - ASTHENIA [None]
  - MENORRHAGIA [None]
  - DECREASED APPETITE [None]
  - NAUSEA [None]
  - PYREXIA [None]
